FAERS Safety Report 12968701 (Version 1)
Quarter: 2016Q4

REPORT INFORMATION
  Report Type: Spontaneous
  Country: US (occurrence: US)
  Receive Date: 20161123
  Receipt Date: 20161123
  Transmission Date: 20170207
  Serious: Yes (Life-Threatening, Hospitalization)
  Sender: FDA-Public Use
  Company Number: None

PATIENT
  Age: 78 Year
  Sex: Male
  Weight: 99.79 kg

DRUGS (18)
  1. BACTRIM [Concomitant]
     Active Substance: SULFAMETHOXAZOLE\TRIMETHOPRIM
  2. ULORIC [Concomitant]
     Active Substance: FEBUXOSTAT
  3. BYSTOLIC [Concomitant]
     Active Substance: NEBIVOLOL HYDROCHLORIDE
  4. VASCEPA [Concomitant]
     Active Substance: ICOSAPENT ETHYL
  5. ASPIRIN. [Concomitant]
     Active Substance: ASPIRIN
  6. GABAPENTIN. [Concomitant]
     Active Substance: GABAPENTIN
  7. HUMALOG [Suspect]
     Active Substance: INSULIN LISPRO
     Dosage: HUMALOG KWIK PEN - TAKE AS NEEDED BEFORE MEALS (100 UNITS PER ML) -BY INJECTION - BEFORE EACH MEAL
  8. ZETIA [Concomitant]
     Active Substance: EZETIMIBE
  9. FINISTERIDE 1 OR 5MG MERCK [Concomitant]
     Active Substance: FINASTERIDE
  10. TRESIBA [Suspect]
     Active Substance: INSULIN DEGLUDEC
     Indication: TYPE 2 DIABETES MELLITUS
     Dosage: TRESIBA FLEXTORCH - 1 INJECTION DAILY/AM - QUANITY 54 UNITS
     Dates: start: 201603
  11. MYCOPHENOLATE MOFETIL. [Concomitant]
     Active Substance: MYCOPHENOLATE MOFETIL
  12. VITAMIN B12 [Concomitant]
     Active Substance: CYANOCOBALAMIN
  13. VITAMIN D3 [Concomitant]
     Active Substance: CHOLECALCIFEROL
  14. TAMSULOSIN [Concomitant]
     Active Substance: TAMSULOSIN
  15. CENTRUM SILVER [Concomitant]
     Active Substance: MINERALS\VITAMINS
  16. TACROLIMUS. [Concomitant]
     Active Substance: TACROLIMUS
  17. NIFEDICAL XL [Concomitant]
     Active Substance: NIFEDIPINE
  18. SYNTHROID [Concomitant]
     Active Substance: LEVOTHYROXINE SODIUM

REACTIONS (3)
  - Product packaging confusion [None]
  - Incorrect dose administered [None]
  - Blood glucose decreased [None]

NARRATIVE: CASE EVENT DATE: 20160930
